FAERS Safety Report 7849688-3 (Version None)
Quarter: 2011Q4

REPORT INFORMATION
  Report Type: 
  Country: None (occurrence: None)
  Receive Date: 20111026
  Receipt Date: 20111017
  Transmission Date: 20120403
  Serious: Yes (Hospitalization, Other)
  Sender: FDA-Public Use
  Company Number: GB-NAPPMUNDI-GBR-2011-0008922

PATIENT
  Age: 76 Year
  Sex: Female

DRUGS (4)
  1. TRIMETHOPRIM [Concomitant]
     Indication: URINARY TRACT INFECTION
     Route: 065
  2. SALMETEROL XINAFOATE [Concomitant]
     Dosage: 25 MCG, UNK
     Route: 055
  3. FLUTICASONE PROPIONATE [Concomitant]
     Dosage: 250 MCG, UNK
     Route: 055
  4. THEOPHYLLINE [Suspect]
     Indication: CHRONIC OBSTRUCTIVE PULMONARY DISEASE
     Dosage: 175 MG, BID
     Route: 065

REACTIONS (7)
  - MUSCLE TWITCHING [None]
  - MALAISE [None]
  - TOBACCO INTERACTION [None]
  - DRUG LEVEL INCREASED [None]
  - GRAND MAL CONVULSION [None]
  - FACIAL SPASM [None]
  - DIZZINESS [None]
